FAERS Safety Report 4709481-7 (Version None)
Quarter: 2005Q3

REPORT INFORMATION
  Report Type: 
  Country: None (occurrence: None)
  Receive Date: 20050706
  Receipt Date: 20050617
  Transmission Date: 20060218
  Serious: Yes (Hospitalization)
  Sender: FDA-Public Use
  Company Number: 214493

PATIENT
  Sex: Female
  Weight: 1.8 kg

DRUGS (7)
  1. HERCEPTIN [Suspect]
     Indication: BREAST CANCER METASTATIC
     Dosage: 6 MG/KG, Q3W, TRANSPLACENTAL
     Route: 064
     Dates: start: 20040101
  2. BETAMETHASONE [Concomitant]
  3. ENOXAPARIN SODIUM [Concomitant]
  4. ASPIRIN [Concomitant]
  5. ZOPICLONE (ZOPICLONE) [Concomitant]
  6. BRICANYL TURBOHALER (TERBUTALINE SULFATE) [Concomitant]
  7. PULMICORT [Concomitant]

REACTIONS (6)
  - BLOOD CREATINE INCREASED [None]
  - BLOOD UREA INCREASED [None]
  - CAESAREAN SECTION [None]
  - DRUG EXPOSURE DURING PREGNANCY [None]
  - NEONATAL DISORDER [None]
  - OLIGOHYDRAMNIOS [None]
